FAERS Safety Report 22399385 (Version 3)
Quarter: 2024Q3

REPORT INFORMATION
  Report Type: Spontaneous
  Country: CZ (occurrence: CZ)
  Receive Date: 20230602
  Receipt Date: 20240711
  Transmission Date: 20241017
  Serious: Yes (Other)
  Sender: ASTELLAS
  Company Number: CZ-ASTELLAS-2023US016549

PATIENT
  Age: 43 Year
  Sex: Female

DRUGS (16)
  1. XOSPATA [Suspect]
     Active Substance: GILTERITINIB
     Indication: Acute myelomonocytic leukaemia
     Route: 065
     Dates: start: 20230405
  2. XOSPATA [Suspect]
     Active Substance: GILTERITINIB
     Indication: FLT3 gene mutation
     Dosage: 80 MG, ONCE DAILY (2-0-0)
     Route: 065
     Dates: start: 20230504, end: 20230510
  3. CIPROFLOXACIN HYDROCHLORIDE [Concomitant]
     Active Substance: CIPROFLOXACIN HYDROCHLORIDE
     Indication: Product used for unknown indication
     Dosage: 500 MG, TWICE DAILY (1-0-1)
     Route: 065
     Dates: start: 20230124, end: 20230514
  4. VALACYCLOVIR [Concomitant]
     Active Substance: VALACYCLOVIR HYDROCHLORIDE
     Indication: Product used for unknown indication
     Dosage: 500 MG, TWICE DAILY (1-0-1)
     Route: 065
     Dates: start: 20230124
  5. NOXAFIL [Concomitant]
     Active Substance: POSACONAZOLE
     Indication: Product used for unknown indication
     Dosage: 300 MG, ONCE DAILY (100 MG, 0-3-0)
     Route: 065
     Dates: start: 20230124
  6. MAGNESIUM LACTATE [Concomitant]
     Active Substance: MAGNESIUM LACTATE
     Indication: Product used for unknown indication
     Dosage: 500 MG, 2-2-2, NOT TOGETHER WITH OTHER DRUGS
     Route: 065
     Dates: start: 20230127
  7. Mirtazapin aurovitas [Concomitant]
     Indication: Product used for unknown indication
     Dosage: 15 MG, ONCE DAILY (0-0-0-1)
     Route: 065
     Dates: start: 20221213
  8. POTASSIUM CHLORIDE [Concomitant]
     Active Substance: POTASSIUM CHLORIDE
     Indication: Product used for unknown indication
     Dosage: 1 G, ONCE DAILY (1-0-0)
     Route: 065
     Dates: start: 20230317, end: 20230420
  9. PANTOPRAZOLE SODIUM [Concomitant]
     Active Substance: PANTOPRAZOLE SODIUM
     Indication: Product used for unknown indication
     Dosage: 20 MG, ONCE DAILY (1-0-0)
     Route: 065
     Dates: start: 20230210
  10. CYCLOSPORINE [Concomitant]
     Active Substance: CYCLOSPORINE
     Indication: Product used for unknown indication
     Dosage: 100 MG/ML, POR SOL 50ML (0,6-0-0,6)
     Route: 065
     Dates: start: 20230404, end: 20230413
  11. CYCLOSPORINE [Concomitant]
     Active Substance: CYCLOSPORINE
     Dosage: 100 MG/ML, POR SOL 50ML (0,4-0-0,4)
     Route: 065
     Dates: start: 20230413, end: 20230427
  12. CYCLOSPORINE [Concomitant]
     Active Substance: CYCLOSPORINE
     Dosage: 100 MG/ML, POR SOL 50ML (0,8-0-0,8)
     Route: 065
     Dates: start: 20230427, end: 20230427
  13. URSOSAN FORTE [Concomitant]
     Indication: Product used for unknown indication
     Dosage: 500 MG, TWICE DAILY (1-0-1)
     Route: 065
     Dates: start: 20230413, end: 20230510
  14. PREDNISONE [Concomitant]
     Active Substance: PREDNISONE
     Indication: Product used for unknown indication
     Dosage: 20 MG, ONCE DAILY (TBL NOB 20 (2-0-0))
     Route: 065
     Dates: start: 20230413, end: 20230420
  15. PREDNISONE [Concomitant]
     Active Substance: PREDNISONE
     Dosage: 20 MG, ONCE DAILY (TBL NOB 20 (1-0-0))
     Route: 065
     Dates: start: 20230420, end: 20230427
  16. PREDNISONE [Concomitant]
     Active Substance: PREDNISONE
     Dosage: 20 MG, ONCE DAILY (TBL NOB 20 (1-0-0))
     Route: 065
     Dates: start: 20230427, end: 20230504

REACTIONS (3)
  - Pancytopenia [Recovered/Resolved]
  - Neutropenia [Not Recovered/Not Resolved]
  - Thrombocytopenia [Recovering/Resolving]

NARRATIVE: CASE EVENT DATE: 20230504
